FAERS Safety Report 20992779 (Version 1)
Quarter: 2022Q2

REPORT INFORMATION
  Report Type: Spontaneous
  Country: US (occurrence: None)
  Receive Date: 20220621
  Receipt Date: 20220621
  Transmission Date: 20220721
  Serious: Yes (Other)
  Sender: FDA-Public Use
  Company Number: None

PATIENT
  Age: 73 Year
  Sex: Female

DRUGS (16)
  1. AMBRISENTAN [Suspect]
     Active Substance: AMBRISENTAN
     Indication: Pulmonary arterial hypertension
     Dosage: FREQUENCY : DAILY;?
     Route: 048
     Dates: start: 20220421, end: 20220508
  2. SILDENAFIL [Concomitant]
  3. HYDROXYCHLOROQUINE [Concomitant]
  4. MYCOPENOLATE [Concomitant]
  5. ALBUTEROL HFA [Concomitant]
  6. ALPRAZOLAM [Concomitant]
  7. AMLODIPINE [Concomitant]
  8. OMEPRAZOLE [Concomitant]
  9. IBUPROFEN [Concomitant]
  10. LASIX [Concomitant]
  11. K-TAB [Concomitant]
  12. ATROVENT NASAL SPRAY [Concomitant]
  13. MUPIROCIN TOP OINT [Concomitant]
  14. COLCHICINE [Concomitant]
  15. LISINOPRIL [Concomitant]
  16. VITAMIN D2 [Concomitant]
     Active Substance: ERGOCALCIFEROL

REACTIONS (6)
  - Fatigue [None]
  - Dyspnoea [None]
  - Nasal congestion [None]
  - Heart rate increased [None]
  - Joint swelling [None]
  - Therapy interrupted [None]

NARRATIVE: CASE EVENT DATE: 20220508
